FAERS Safety Report 22251415 (Version 1)
Quarter: 2023Q2

REPORT INFORMATION
  Report Type: Spontaneous
  Country: US (occurrence: None)
  Receive Date: 20230425
  Receipt Date: 20230425
  Transmission Date: 20230721
  Serious: Yes (Disabling)
  Sender: FDA-Public Use
  Company Number: None

PATIENT
  Age: 26 Year
  Sex: Male
  Weight: 62.1 kg

DRUGS (1)
  1. LEVOFLOXACIN [Suspect]
     Active Substance: LEVOFLOXACIN
     Indication: Lung abscess
     Dosage: 7 CAPSULES DAILY ORAL
     Route: 048
     Dates: start: 20230412, end: 20230417

REACTIONS (7)
  - Pain in extremity [None]
  - Pain in extremity [None]
  - Arthralgia [None]
  - Hypoaesthesia [None]
  - Paraesthesia [None]
  - Vision blurred [None]
  - Disturbance in attention [None]

NARRATIVE: CASE EVENT DATE: 20230414
